FAERS Safety Report 8398816-2 (Version None)
Quarter: 2012Q2

REPORT INFORMATION
  Report Type: 
  Country: None (occurrence: None)
  Receive Date: 20120524
  Receipt Date: 20120517
  Transmission Date: 20120825
  Serious: Yes (Life-Threatening, Hospitalization, Other)
  Sender: FDA-Public Use
  Company Number: 2012SP024677

PATIENT
  Age: 64 Year
  Sex: Male
  Weight: 69 kg

DRUGS (23)
  1. TELAVIC (ANTIVIRALS NOS) [Suspect]
     Indication: HEPATITIS C
     Dosage: 2250 MG;QD;PO
     Route: 048
     Dates: start: 20120410, end: 20120416
  2. VITAMIN B12 [Concomitant]
  3. JUVELA N [Concomitant]
  4. AMARYL [Concomitant]
  5. URSO 250 [Concomitant]
  6. KINEDAK [Concomitant]
  7. ROHYPNOL [Concomitant]
  8. LOXONIN [Concomitant]
  9. PEGINTERFERON ALFA-2B [Suspect]
     Indication: HEPATITIS C
     Dosage: 1.5 MCG/KG;QW;SC
     Route: 058
     Dates: start: 20120410, end: 20120416
  10. REBETOL [Suspect]
     Indication: HEPATITIS C
     Dosage: 800 MG;QD;PO 600 MG;QD;PO
     Route: 048
     Dates: start: 20120413, end: 20120416
  11. REBETOL [Suspect]
     Indication: HEPATITIS C
     Dosage: 800 MG;QD;PO 600 MG;QD;PO
     Route: 048
     Dates: start: 20120410, end: 20120412
  12. NESINA [Concomitant]
  13. LENDORMIN D [Concomitant]
  14. PRIMPERAN TAB [Concomitant]
  15. LOXONIN [Concomitant]
  16. DOXAZOSIN MESYLATE [Concomitant]
  17. TRICHLORMETHIAZIDE [Concomitant]
  18. LACTEC [Concomitant]
  19. METFORMIN HYDROCHLORIDE [Concomitant]
  20. ALLOPURINOL [Concomitant]
  21. POTASSIUM CHLORIDE [Concomitant]
  22. ADALAT CC [Concomitant]
  23. OMETEC [Concomitant]

REACTIONS (19)
  - BACK PAIN [None]
  - HAEMOGLOBIN DECREASED [None]
  - BLOOD URIC ACID INCREASED [None]
  - DIARRHOEA [None]
  - PLATELET COUNT DECREASED [None]
  - GENERAL PHYSICAL HEALTH DETERIORATION [None]
  - HEADACHE [None]
  - DECREASED APPETITE [None]
  - CONSTIPATION [None]
  - BLOOD BILIRUBIN INCREASED [None]
  - ARTHRALGIA [None]
  - NAUSEA [None]
  - BLOOD POTASSIUM DECREASED [None]
  - DIZZINESS [None]
  - ABDOMINAL PAIN [None]
  - VOMITING [None]
  - RENAL IMPAIRMENT [None]
  - MALAISE [None]
  - PYREXIA [None]
